FAERS Safety Report 6665577-4 (Version None)
Quarter: 2010Q2

REPORT INFORMATION
  Report Type: 
  Country: None (occurrence: None)
  Receive Date: 20100402
  Receipt Date: 20100324
  Transmission Date: 20101027
  Serious: Yes (Other)
  Sender: FDA-Public Use
  Company Number: HR-SANOFI-AVENTIS-2010SA017827

PATIENT
  Age: 73 Year
  Sex: Male

DRUGS (1)
  1. TERTENSIF - SLOW RELEASE [Suspect]
     Indication: HYPERTENSION
     Route: 048
     Dates: start: 20100202, end: 20100208

REACTIONS (6)
  - BLOOD PRESSURE AMBULATORY INCREASED [None]
  - DRUG INEFFECTIVE [None]
  - LISTLESS [None]
  - MALAISE [None]
  - SENSATION OF HEAVINESS [None]
  - SYNCOPE [None]
